FAERS Safety Report 5752491-1 (Version None)
Quarter: 2008Q2

REPORT INFORMATION
  Report Type: 
  Country: None (occurrence: None)
  Receive Date: 20080527
  Receipt Date: 20080527
  Transmission Date: 20081010
  Serious: Yes (Hospitalization)
  Sender: FDA-Public Use
  Company Number: None

PATIENT
  Age: 89 Year
  Sex: Female
  Weight: 51.7101 kg

DRUGS (1)
  1. DIGITEK [Suspect]
     Indication: ARRHYTHMIA
     Dosage: 1 PILL 3 X A WEEK
     Dates: start: 20080212, end: 20080404

REACTIONS (9)
  - ACTIVITIES OF DAILY LIVING IMPAIRED [None]
  - AMNESIA [None]
  - BLOOD POTASSIUM DECREASED [None]
  - DELUSION [None]
  - ELECTROLYTE IMBALANCE [None]
  - GAIT DISTURBANCE [None]
  - PHARMACEUTICAL PRODUCT COMPLAINT [None]
  - SUICIDAL IDEATION [None]
  - URINARY INCONTINENCE [None]
